FAERS Safety Report 7910705-3 (Version None)
Quarter: 2011Q4

REPORT INFORMATION
  Report Type: 
  Country: None (occurrence: None)
  Receive Date: 20111111
  Receipt Date: 20111104
  Transmission Date: 20120403
  Serious: Yes (Other)
  Sender: FDA-Public Use
  Company Number: CN-ASTRAZENECA-2011SE66707

PATIENT

DRUGS (3)
  1. LIDOCAINE [Suspect]
     Indication: ANAESTHESIA
     Route: 042
  2. REMIFENTANIL [Suspect]
     Indication: ANAESTHESIA
     Dosage: 0.2 UG/(KG.MIN)
     Route: 042
  3. PROPOFOL [Suspect]
     Indication: ANAESTHESIA
     Route: 042

REACTIONS (1)
  - RESPIRATORY DEPRESSION [None]
